FAERS Safety Report 24199651 (Version 2)
Quarter: 2024Q3

REPORT INFORMATION
  Report Type: Report from Study
  Country: ES (occurrence: ES)
  Receive Date: 20240812
  Receipt Date: 20240828
  Transmission Date: 20241016
  Serious: No
  Sender: TRAVERE THERAPEUTICS
  Company Number: TRAVERE

PATIENT
  Sex: Male

DRUGS (2)
  1. FILSPARI [Suspect]
     Active Substance: SPARSENTAN
     Indication: IgA nephropathy
     Route: 002
  2. FILSPARI [Suspect]
     Active Substance: SPARSENTAN
     Route: 002
     Dates: start: 2024

REACTIONS (2)
  - Therapy change [Unknown]
  - Hypotension [Unknown]

NARRATIVE: CASE EVENT DATE: 20240101
